FAERS Safety Report 5000632-6 (Version None)
Quarter: 2006Q2

REPORT INFORMATION
  Report Type: 
  Country: None (occurrence: None)
  Receive Date: 20060512
  Receipt Date: 20060502
  Transmission Date: 20061013
  Serious: Yes (Hospitalization)
  Sender: FDA-Public Use
  Company Number: US-BRISTOL-MYERS SQUIBB COMPANY-13364179

PATIENT
  Age: 76 Year
  Sex: Female
  Weight: 52 kg

DRUGS (10)
  1. COUMADIN [Suspect]
     Indication: ATRIAL FIBRILLATION
     Dosage: USUALLY TAKES NO MORE THAN 31.25 MG PER WEEK
     Dates: start: 20050401
  2. LOPRESSOR [Concomitant]
  3. PROZAC [Concomitant]
  4. ASPIRIN [Concomitant]
  5. MAG-OX [Concomitant]
  6. ZOCOR [Concomitant]
  7. LASIX [Concomitant]
  8. K-DUR 10 [Concomitant]
  9. CENTRUM SILVER [Concomitant]
  10. VITAMIN D [Concomitant]

REACTIONS (3)
  - CATHETERISATION CARDIAC [None]
  - CONTUSION [None]
  - NEOPLASM [None]
